FAERS Safety Report 8294332-7 (Version None)
Quarter: 2012Q2

REPORT INFORMATION
  Report Type: 
  Country: None (occurrence: None)
  Receive Date: 20120418
  Receipt Date: 20120411
  Transmission Date: 20120825
  Serious: Yes (Hospitalization, Other)
  Sender: FDA-Public Use
  Company Number: NZ-B.I. PHARMACEUTICALS,INC./RIDGEFIELD-2011-AU-02261AU

PATIENT
  Sex: Female
  Weight: 56 kg

DRUGS (6)
  1. ETHICS ASPIRIN [Concomitant]
  2. FOSAMAX PLUS D [Concomitant]
  3. METOPROLOL TARTRATE [Concomitant]
     Dosage: 47.5 MG
  4. LIPITOR [Concomitant]
  5. ALLOPURINOL [Concomitant]
  6. PRADAXA [Suspect]
     Indication: ATRIAL FIBRILLATION
     Dosage: 150 MG
     Dates: start: 20110804, end: 20111027

REACTIONS (2)
  - RECTAL HAEMORRHAGE [None]
  - COLON CANCER [None]
